FAERS Safety Report 11417545 (Version 7)
Quarter: 2016Q2

REPORT INFORMATION
  Report Type: Report from Study
  Country: US (occurrence: US)
  Receive Date: 20150825
  Receipt Date: 20160419
  Transmission Date: 20160815
  Serious: Yes (Hospitalization)
  Sender: FDA-Public Use
  Company Number: US-ACTELION-A-NJ2015-122866

PATIENT
  Age: 80 Year
  Sex: Female

DRUGS (19)
  1. FUROSEMIDE. [Concomitant]
     Active Substance: FUROSEMIDE
     Dosage: 60 MG, UNK
  2. LOSARTAN. [Concomitant]
     Active Substance: LOSARTAN
     Dosage: 25 MG 1/2 TAB, QD
  3. BUDESONIDE. [Concomitant]
     Active Substance: BUDESONIDE
     Dosage: UNK, BID
  4. CHOLECALCIFEROL [Concomitant]
     Active Substance: CHOLECALCIFEROL
     Dosage: 1000 IU, QD
  5. FOLIC ACID. [Concomitant]
     Active Substance: FOLIC ACID
     Dosage: 800 MG, QD
  6. POTASSIUM CHLORIDE. [Concomitant]
     Active Substance: POTASSIUM CHLORIDE
     Dosage: 10 MEQ, QD
  7. FLUTICASONE [Concomitant]
     Active Substance: FLUTICASONE\FLUTICASONE PROPIONATE
     Dosage: 1 SPRAY, QD
  8. TRAMADOL. [Concomitant]
     Active Substance: TRAMADOL
     Dosage: 50 MG, TID
  9. MACITENTAN [Suspect]
     Active Substance: MACITENTAN
     Indication: PULMONARY HYPERTENSION
     Dosage: 10 MG, QD
     Route: 048
     Dates: start: 20141229
  10. MACITENTAN [Suspect]
     Active Substance: MACITENTAN
     Dosage: 10 MG, QD
     Route: 048
     Dates: start: 201511
  11. CLONAZEPAM. [Concomitant]
     Active Substance: CLONAZEPAM
     Dosage: 0.5 MG, QPM
  12. OXYBUTYNIN [Concomitant]
     Active Substance: OXYBUTYNIN
     Dosage: 5 MG, QPM
  13. OMEGA 3 [Concomitant]
     Active Substance: OMEGA-3 FATTY ACIDS
     Dosage: 1 TAB, QD
  14. UBIQUINONE [Concomitant]
     Active Substance: UBIDECARENONE
     Dosage: 30 MG, QD
  15. SILDENAFIL. [Concomitant]
     Active Substance: SILDENAFIL
     Dosage: 20 MG, TID
     Route: 048
  16. WARFARIN [Concomitant]
     Active Substance: WARFARIN
     Dosage: 6 MG, QD
  17. OMEPRAZOLE. [Concomitant]
     Active Substance: OMEPRAZOLE
     Dosage: 20 MG, BID
     Route: 048
  18. ALBUTEROL. [Concomitant]
     Active Substance: ALBUTEROL
     Dosage: UNK, QID
  19. FERROUS SULFATE. [Concomitant]
     Active Substance: FERROUS SULFATE
     Dosage: 325 MG, BID
     Route: 048

REACTIONS (11)
  - Pulmonary embolism [Recovered/Resolved]
  - Mitral valve repair [Recovered/Resolved]
  - Hypoacusis [Unknown]
  - Cataract operation [Unknown]
  - Heart valve incompetence [Recovered/Resolved]
  - Endarterectomy [Recovered/Resolved]
  - Vena cava filter insertion [Unknown]
  - Thrombosis [Recovered/Resolved]
  - Deep vein thrombosis [Recovered/Resolved]
  - Cardiac pacemaker insertion [Unknown]
  - Anaemia [Unknown]

NARRATIVE: CASE EVENT DATE: 20150805
